FAERS Safety Report 23014926 (Version 3)
Quarter: 2023Q4

REPORT INFORMATION
  Report Type: Spontaneous
  Country: US (occurrence: US)
  Receive Date: 20231002
  Receipt Date: 20231109
  Transmission Date: 20240110
  Serious: No
  Sender: FDA-Public Use
  Company Number: US-PFIZER INC-202300295390

PATIENT
  Age: 58 Year
  Sex: Female

DRUGS (2)
  1. ESTRING [Suspect]
     Active Substance: ESTRADIOL
     Indication: Menopause
     Dosage: 2 MG, EVERY 3 MONTHS
     Route: 067
  2. ESTRADIOL [Concomitant]
     Active Substance: ESTRADIOL
     Dosage: 0.1 MG, DAILY

REACTIONS (2)
  - Vulvovaginal discomfort [Unknown]
  - Therapeutic product effect decreased [Unknown]

NARRATIVE: CASE EVENT DATE: 20230901
